FAERS Safety Report 5648178-6 (Version None)
Quarter: 2008Q1

REPORT INFORMATION
  Report Type: 
  Country: None (occurrence: None)
  Receive Date: 20080229
  Receipt Date: 20080222
  Transmission Date: 20080703
  Serious: Yes (Death)
  Sender: FDA-Public Use
  Company Number: 2008-01517

PATIENT
  Age: 48 Year
  Sex: Male

DRUGS (7)
  1. METHYLPREDNISOLONE ACETATE [Suspect]
     Indication: ANTIPHOSPHOLIPID SYNDROME
     Dosage: 500 MG, DAILY, INTRAVENOUS
     Route: 042
  2. HEPARIN-FRACTION(HEPARIN-FRACTION) INJECTION [Suspect]
     Indication: ANTIPHOSPHOLIPID SYNDROME
     Dosage: SUBCUTANEOUS
     Route: 058
  3. PROSTACYCLINE(EPOPROSTENOL) [Suspect]
     Indication: NECROSIS
     Dosage: INTRAVENOUS
     Route: 042
  4. PROSTACYCLINE(EPOPROSTENOL) [Suspect]
     Indication: PAIN IN EXTREMITY
     Dosage: INTRAVENOUS
     Route: 042
  5. ANTIBIOTICS [Suspect]
     Indication: DRUG USE FOR UNKNOWN INDICATION
     Dosage: INTRAVENOUS
     Route: 042
  6. URAPIDIL(URAPIDIL) [Suspect]
     Indication: HYPERTENSION
     Dosage: INTRAVENOUS
     Route: 042
  7. OXYGEN (HYPERBARIC)(OXYGEN) [Suspect]

REACTIONS (2)
  - CEREBRAL HAEMORRHAGE [None]
  - HAEMODIALYSIS [None]
